FAERS Safety Report 4681045-3 (Version None)
Quarter: 2005Q2

REPORT INFORMATION
  Report Type: 
  Country: None (occurrence: None)
  Receive Date: 20050601
  Receipt Date: 20050601
  Transmission Date: 20051028
  Serious: Yes (Life-Threatening)
  Sender: FDA-Public Use
  Company Number: None

PATIENT
  Age: 67 Year
  Sex: Male
  Weight: 135.8 kg

DRUGS (3)
  1. DIGOXIN [Suspect]
     Indication: CARDIOMYOPATHY
     Dosage: 0.25MG  DAILY ORAL
     Route: 048
  2. DIGOXIN [Suspect]
     Indication: PERICARDITIS
     Dosage: 0.25MG  DAILY ORAL
     Route: 048
  3. CARVEDILOL [Suspect]
     Indication: HYPERTENSIVE CARDIOMYOPATHY
     Dosage: 25MG BID ORAL
     Route: 048

REACTIONS (4)
  - BLOOD PRESSURE DECREASED [None]
  - HEART RATE DECREASED [None]
  - SLUGGISHNESS [None]
  - THERAPEUTIC AGENT TOXICITY [None]
